FAERS Safety Report 5801769-1 (Version None)
Quarter: 2008Q2

REPORT INFORMATION
  Report Type: 
  Country: None (occurrence: None)
  Receive Date: 20080624
  Receipt Date: 20080611
  Transmission Date: 20081010
  Serious: Yes (Disabling)
  Sender: FDA-Public Use
  Company Number: WAES 0806USA03008

PATIENT
  Age: 72 Year
  Sex: Male

DRUGS (1)
  1. ZOCOR [Suspect]
     Dosage: PO
     Route: 048

REACTIONS (2)
  - ABASIA [None]
  - MYALGIA [None]
